FAERS Safety Report 17633376 (Version 1)
Quarter: 2020Q2

REPORT INFORMATION
  Report Type: Spontaneous
  Country: US (occurrence: US)
  Receive Date: 20200407
  Receipt Date: 20200407
  Transmission Date: 20200713
  Serious: No
  Sender: FDA-Public Use
  Company Number: US-INCYTE CORPORATION-2020IN003189

PATIENT

DRUGS (1)
  1. JAKAFI [Suspect]
     Active Substance: RUXOLITINIB
     Route: 065

REACTIONS (4)
  - Red blood cell count abnormal [Unknown]
  - Platelet count abnormal [Unknown]
  - White blood cell count abnormal [Unknown]
  - Haematocrit abnormal [Unknown]
